FAERS Safety Report 14774273 (Version 2)
Quarter: 2018Q2

REPORT INFORMATION
  Report Type: Spontaneous
  Country: JP (occurrence: JP)
  Receive Date: 20180418
  Receipt Date: 20180426
  Transmission Date: 20180711
  Serious: Yes (Other)
  Sender: FDA-Public Use
  Company Number: JP-CELLTRION INC.-2018JP018706

PATIENT

DRUGS (1)
  1. INFLIXIMAB BS FOR I.V. INFUSION100 MG [NK] [Suspect]
     Active Substance: INFLIXIMAB
     Indication: PRODUCT USED FOR UNKNOWN INDICATION
     Route: 065

REACTIONS (1)
  - Injection site reaction [Recovered/Resolved]
